FAERS Safety Report 9254876 (Version 1)
Quarter: 2013Q2

REPORT INFORMATION
  Report Type: Spontaneous
  Country: US (occurrence: US)
  Receive Date: 20130425
  Receipt Date: 20130425
  Transmission Date: 20140414
  Serious: Yes (Other)
  Sender: FDA-Public Use
  Company Number: US-BAYER-2013-048833

PATIENT
  Age: 97 Year
  Sex: Female
  Weight: 58.5 kg

DRUGS (7)
  1. BAYER CHEWABLE LOW DOSE BABY ASPIRIN TABLET ORANGE [Suspect]
     Indication: LOCAL SWELLING
     Dosage: 1 DF, QD
     Dates: start: 201301
  2. XANAX [Concomitant]
  3. THYROXINE [Concomitant]
  4. NORVASC [Concomitant]
  5. HYDROCHLOROTHIAZIDE [Concomitant]
  6. MONODOX [Concomitant]
  7. VITAMIN B12 NOS [Concomitant]

REACTIONS (4)
  - Skin ulcer haemorrhage [Not Recovered/Not Resolved]
  - Infected skin ulcer [Not Recovered/Not Resolved]
  - Coeliac disease [Not Recovered/Not Resolved]
  - Incorrect drug administration duration [None]
